FAERS Safety Report 14088499 (Version 1)
Quarter: 2017Q4

REPORT INFORMATION
  Report Type: Spontaneous
  Country: GB (occurrence: GB)
  Receive Date: 20171013
  Receipt Date: 20171013
  Transmission Date: 20180321
  Serious: Yes (Hospitalization)
  Sender: FDA-Public Use
  Company Number: GB-ABBVIE-17P-167-2094264-00

PATIENT
  Age: 56 Year
  Sex: Female
  Weight: 65 kg

DRUGS (4)
  1. DOTAREM [Suspect]
     Active Substance: GADOTERATE MEGLUMINE
     Indication: ARTHROGRAM
     Route: 014
     Dates: start: 201703, end: 201703
  2. OMNIPAQUE [Suspect]
     Active Substance: IOHEXOL
     Indication: ARTHROGRAM
     Route: 014
     Dates: start: 201704, end: 201704
  3. LIDOCAINE HYDROCHLORIDE. [Suspect]
     Active Substance: LIDOCAINE HYDROCHLORIDE
     Indication: ARTHROGRAM
     Dosage: 2-3 ML
     Route: 058
     Dates: start: 201708, end: 201708
  4. CHIROCAINE [Suspect]
     Active Substance: LEVOBUPIVACAINE HYDROCHLORIDE
     Indication: ARTHROGRAM
     Route: 014
     Dates: start: 201708, end: 201708

REACTIONS (6)
  - Chest pain [Not Recovered/Not Resolved]
  - Feeling of body temperature change [Unknown]
  - Dyspnoea [Unknown]
  - Nausea [Unknown]
  - Cold sweat [Unknown]
  - Dizziness [Unknown]

NARRATIVE: CASE EVENT DATE: 20170825
